FAERS Safety Report 17872378 (Version 1)
Quarter: 2020Q2

REPORT INFORMATION
  Report Type: Spontaneous
  Country: NL (occurrence: NL)
  Receive Date: 20200608
  Receipt Date: 20200608
  Transmission Date: 20200714
  Serious: Yes (Hospitalization)
  Sender: FDA-Public Use
  Company Number: NL-MYLANLABS-2020M1055015

PATIENT
  Age: 45 Year
  Sex: Male

DRUGS (5)
  1. EMTRICITABINE/TENOFOVIR DISOPROXIL FUMARATE [Suspect]
     Active Substance: EMTRICITABINE\TENOFOVIR DISOPROXIL FUMARATE
     Indication: PROPHYLAXIS
     Dosage: 1 DOSAGE FORM, QD (1 X PER DAG 1 STUK)
     Dates: start: 2019, end: 20200520
  2. SERTRALINE [Concomitant]
     Active Substance: SERTRALINE HYDROCHLORIDE
     Dosage: TABLET, 100 MG (MILLIGRAM)
  3. QUETIAPINE. [Concomitant]
     Active Substance: QUETIAPINE
     Dosage: FILMOMHULDE TABLET, 25 MG (MILLIGRAM)
  4. DISULFIRAM. [Concomitant]
     Active Substance: DISULFIRAM
     Dosage: BRUISTABLET, 400 MG (MILLIGRAM)
  5. SERTRALINE [Concomitant]
     Active Substance: SERTRALINE HYDROCHLORIDE
     Dosage: TABLET, 50 MG (MILLIGRAM)

REACTIONS (3)
  - Blood creatine phosphokinase increased [Unknown]
  - Myalgia [Unknown]
  - Syncope [Unknown]

NARRATIVE: CASE EVENT DATE: 20200520
